FAERS Safety Report 16979359 (Version 2)
Quarter: 2020Q4

REPORT INFORMATION
  Report Type: Other
  Country: CA (occurrence: CA)
  Receive Date: 20191031
  Receipt Date: 20201218
  Transmission Date: 20210113
  Serious: Yes (Other)
  Sender: FDA-Public Use
  Company Number: CA-ROCHE-2447688

PATIENT
  Age: 38 Year
  Sex: Female
  Weight: 73 kg

DRUGS (12)
  1. ACETAMINOFEN [Concomitant]
     Active Substance: ACETAMINOPHEN
  2. CANNABIS [Concomitant]
     Active Substance: CANNABIS SATIVA SUBSP. INDICA TOP
  3. OCREVUS [Suspect]
     Active Substance: OCRELIZUMAB
     Indication: RELAPSING-REMITTING MULTIPLE SCLEROSIS
     Route: 042
     Dates: start: 20191009
  4. VALACICLOVIR [Concomitant]
     Active Substance: VALACYCLOVIR HYDROCHLORIDE
  5. VOLTAREN [Concomitant]
     Active Substance: DICLOFENAC SODIUM
  6. MODAFINIL. [Concomitant]
     Active Substance: MODAFINIL
  7. ATIVAN [Concomitant]
     Active Substance: LORAZEPAM
  8. MYRBETRIQ [Concomitant]
     Active Substance: MIRABEGRON
  9. CAFFEINE. [Concomitant]
     Active Substance: CAFFEINE
  10. GABAPENTIN. [Concomitant]
     Active Substance: GABAPENTIN
  11. ZOPICLONE [Concomitant]
     Active Substance: ZOPICLONE
  12. PREDNISONE. [Concomitant]
     Active Substance: PREDNISONE

REACTIONS (17)
  - Depression [Recovering/Resolving]
  - Pain [Recovered/Resolved]
  - Fatigue [Not Recovered/Not Resolved]
  - Dizziness [Recovered/Resolved]
  - Back injury [Recovering/Resolving]
  - Paraesthesia [Unknown]
  - Bipolar disorder [Unknown]
  - Infusion related reaction [Recovered/Resolved]
  - Ear pain [Not Recovered/Not Resolved]
  - Insomnia [Not Recovered/Not Resolved]
  - Cough [Unknown]
  - Muscle spasms [Not Recovered/Not Resolved]
  - Tremor [Not Recovered/Not Resolved]
  - Feeling abnormal [Not Recovered/Not Resolved]
  - Bipolar I disorder [Not Recovered/Not Resolved]
  - Headache [Recovered/Resolved]
  - Frequent bowel movements [Recovered/Resolved]

NARRATIVE: CASE EVENT DATE: 20191009
